FAERS Safety Report 16387427 (Version 2)
Quarter: 2019Q2

REPORT INFORMATION
  Report Type: Report from Study
  Country: None (occurrence: US)
  Receive Date: 20190604
  Receipt Date: 20190618
  Transmission Date: 20190711
  Serious: Yes (Other)
  Sender: FDA-Public Use
  Company Number: US-ABBVIE-19K-163-2722015-00

PATIENT
  Age: 63 Year
  Sex: Male

DRUGS (1)
  1. HUMIRA [Suspect]
     Active Substance: ADALIMUMAB
     Indication: PSORIASIS
     Route: 058

REACTIONS (11)
  - Influenza [Unknown]
  - Food intolerance [Unknown]
  - Procedural nausea [Unknown]
  - Sinusitis [Recovered/Resolved]
  - Umbilical hernia [Unknown]
  - Aphonia [Not Recovered/Not Resolved]
  - Blood test abnormal [Unknown]
  - Diabetes mellitus [Not Recovered/Not Resolved]
  - Vomiting [Unknown]
  - Drug ineffective [Unknown]
  - Pneumonia [Unknown]

NARRATIVE: CASE EVENT DATE: 2019
